FAERS Safety Report 25362762 (Version 1)
Quarter: 2025Q2

REPORT INFORMATION
  Report Type: Spontaneous
  Country: US (occurrence: US)
  Receive Date: 20250527
  Receipt Date: 20250527
  Transmission Date: 20250716
  Serious: No
  Sender: ELI LILLY AND COMPANY
  Company Number: US-ELI_LILLY_AND_COMPANY-US202505016915

PATIENT
  Age: 60 Year
  Sex: Female

DRUGS (1)
  1. EBGLYSS [Suspect]
     Active Substance: LEBRIKIZUMAB-LBKZ
     Indication: Eczema
     Route: 065
     Dates: start: 202409

REACTIONS (3)
  - Visual impairment [Unknown]
  - Vision blurred [Unknown]
  - Migraine [Unknown]

NARRATIVE: CASE EVENT DATE: 20250517
